FAERS Safety Report 16328090 (Version 1)
Quarter: 2019Q2

REPORT INFORMATION
  Report Type: Spontaneous
  Country: US (occurrence: US)
  Receive Date: 20190518
  Receipt Date: 20190518
  Transmission Date: 20190711
  Serious: Yes (Hospitalization)
  Sender: FDA-Public Use
  Company Number: US-ZYDUS-037004

PATIENT
  Age: 73 Year
  Sex: Male

DRUGS (2)
  1. VALPROIC ACID. [Suspect]
     Active Substance: VALPROIC ACID
     Indication: SEIZURE
     Route: 065
  2. LEVETIRACETAM. [Suspect]
     Active Substance: LEVETIRACETAM
     Indication: SEIZURE
     Route: 065

REACTIONS (6)
  - Mental status changes [Not Recovered/Not Resolved]
  - Aphasia [Not Recovered/Not Resolved]
  - Parkinsonism [Not Recovered/Not Resolved]
  - Movement disorder [Not Recovered/Not Resolved]
  - Paranoia [Not Recovered/Not Resolved]
  - Gait disturbance [Not Recovered/Not Resolved]
